FAERS Safety Report 4531729-2 (Version None)
Quarter: 2004Q4

REPORT INFORMATION
  Report Type: 
  Country: None (occurrence: None)
  Receive Date: 20041206
  Receipt Date: 20040922
  Transmission Date: 20050328
  Serious: No
  Sender: FDA-Public Use
  Company Number: USA040979111

PATIENT
  Age: 72 Year
  Sex: Female
  Weight: 72 kg

DRUGS (4)
  1. CYMBALTA [Suspect]
     Indication: DEPRESSION
     Dosage: 30 MG DAY
     Dates: start: 20040915
  2. ALLEGRA [Concomitant]
  3. ATENOLOL [Concomitant]
  4. ACETYLSALICYLIC ACID SRT [Concomitant]

REACTIONS (5)
  - ANXIETY [None]
  - CONSTIPATION [None]
  - DECREASED APPETITE [None]
  - FEELING ABNORMAL [None]
  - IRRITABILITY [None]
